FAERS Safety Report 16226686 (Version 2)
Quarter: 2020Q2

REPORT INFORMATION
  Report Type: Spontaneous
  Country: FR (occurrence: FR)
  Receive Date: 20190423
  Receipt Date: 20200511
  Transmission Date: 20200713
  Serious: Yes (Hospitalization)
  Sender: FDA-Public Use
  Company Number: FR-SUN PHARMACEUTICAL INDUSTRIES LTD-2019RR-205952

PATIENT
  Age: 45 Year
  Sex: Female
  Weight: 75.3 kg

DRUGS (6)
  1. RANITIDINE (CHLORHYDRATE DE) [Suspect]
     Active Substance: RANITIDINE HYDROCHLORIDE
     Indication: PREMEDICATION
     Dosage: 150 MILLIGRAM, WEEKLY
     Route: 048
     Dates: start: 20181116, end: 20190222
  2. SOLUPRED 20 MG, COMPRIME ORODISPERSIBLE [Suspect]
     Active Substance: PREDNISOLONE SODIUM METAZOATE
     Indication: PROPHYLAXIS OF NAUSEA AND VOMITING
     Dosage: 2 DOSAGE FORM, WEEKLY
     Route: 048
     Dates: start: 20181116, end: 20190222
  3. TRASTUZUMAB  ((MAMMIFERE/HAMSTER/CELLULES CHO)) [Suspect]
     Active Substance: TRASTUZUMAB
     Indication: BREAST CANCER
     Dosage: UNK UNK, WEEKLY
     Route: 041
     Dates: start: 20181130
  4. LEVOCETIRIZINE [Suspect]
     Active Substance: LEVOCETIRIZINE
     Indication: PREMEDICATION
     Dosage: 5 MILLIGRAM, WEEKLY
     Route: 048
     Dates: start: 20181116, end: 20190222
  5. CAPECITABINE. [Suspect]
     Active Substance: CAPECITABINE
     Indication: BREAST CANCER
     Dosage: INCONNUE ()
     Route: 048
     Dates: start: 20181130, end: 20190222
  6. PACLITAXEL. [Suspect]
     Active Substance: PACLITAXEL
     Indication: BREAST CANCER
     Dosage: 144 MILLIGRAM, WEEKLY
     Route: 041
     Dates: start: 20181130, end: 20190222

REACTIONS (1)
  - Type 2 diabetes mellitus [Recovered/Resolved with Sequelae]

NARRATIVE: CASE EVENT DATE: 201903
